FAERS Safety Report 15944274 (Version 2)
Quarter: 2019Q1

REPORT INFORMATION
  Report Type: Spontaneous
  Country: DE (occurrence: DE)
  Receive Date: 20190211
  Receipt Date: 20190221
  Transmission Date: 20190417
  Serious: Yes (Other)
  Sender: FDA-Public Use
  Company Number: DE-TEVA-2019-DE-1008728

PATIENT
  Age: 69 Year
  Sex: Male
  Weight: 73 kg

DRUGS (4)
  1. ATORVASTATIN-RATIOPHARM 20 MG FILMTABLETTEN [Suspect]
     Active Substance: ATORVASTATIN
     Indication: ARTERIOSCLEROSIS
     Route: 048
     Dates: start: 201609
  2. ASS 100 RATIOPHARM [Concomitant]
     Indication: ARTERIOSCLEROSIS
  3. ATORVASTATIN-RATIOPHARM 20 MG FILMTABLETTEN [Suspect]
     Active Substance: ATORVASTATIN
     Indication: HYPERLIPIDAEMIA
     Route: 048
     Dates: start: 20160630
  4. ASS 100 RATIOPHARM [Concomitant]
     Indication: HYPERLIPIDAEMIA
     Route: 048
     Dates: start: 2012, end: 20190114

REACTIONS (4)
  - Tendon operation [Unknown]
  - Glucose tolerance impaired [Not Recovered/Not Resolved]
  - Muscle atrophy [Not Recovered/Not Resolved]
  - Tendon rupture [Recovering/Resolving]

NARRATIVE: CASE EVENT DATE: 2017
